FAERS Safety Report 21295298 (Version 2)
Quarter: 2022Q4

REPORT INFORMATION
  Report Type: Report from Study
  Country: US (occurrence: US)
  Receive Date: 20220905
  Receipt Date: 20221122
  Transmission Date: 20230112
  Serious: Yes (Other)
  Sender: FDA-Public Use
  Company Number: US-ABBVIE-22K-163-4528885-00

PATIENT
  Sex: Female

DRUGS (2)
  1. HUMIRA [Suspect]
     Active Substance: ADALIMUMAB
     Indication: Psoriatic arthropathy
     Dosage: CF, FORM STRENGTH: 40 MG
     Route: 058
     Dates: start: 20211229, end: 20220729
  2. HUMIRA [Suspect]
     Active Substance: ADALIMUMAB
     Dosage: CF, FORM STRENGTH: 40 MG
     Route: 058

REACTIONS (4)
  - Breast cancer female [Not Recovered/Not Resolved]
  - Nausea [Recovering/Resolving]
  - Spinal pain [Recovering/Resolving]
  - Psoriatic arthropathy [Not Recovered/Not Resolved]
